FAERS Safety Report 12119597 (Version 1)
Quarter: 2016Q1

REPORT INFORMATION
  Report Type: Spontaneous
  Country: US (occurrence: US)
  Receive Date: 20160226
  Receipt Date: 20160226
  Transmission Date: 20160526
  Serious: Yes (Death)
  Sender: FDA-Public Use
  Company Number: US-ASTELLAS-2016US006799

PATIENT
  Age: 25 Year
  Sex: Male

DRUGS (1)
  1. PROGRAF [Suspect]
     Active Substance: TACROLIMUS\TACROLIMUS ANHYDROUS
     Indication: LIVER TRANSPLANT
     Dosage: 1 MG IN AM AND 2 MG IN PM TWICE DAILY
     Route: 048
     Dates: start: 19990324, end: 20160222

REACTIONS (1)
  - Death [Fatal]

NARRATIVE: CASE EVENT DATE: 20160222
